FAERS Safety Report 9217054 (Version 1)
Quarter: 2013Q2

REPORT INFORMATION
  Report Type: Spontaneous
  Country: JP (occurrence: None)
  Receive Date: 20130404
  Receipt Date: 20130404
  Transmission Date: 20140414
  Serious: Yes (Life-Threatening)
  Sender: FDA-Public Use
  Company Number: JP-011341

PATIENT
  Age: 60 Year
  Sex: Male

DRUGS (4)
  1. DEGARELIX (GONAX) [Suspect]
     Indication: BENIGN PROSTATIC HYPERPLASIA
     Route: 058
     Dates: start: 20130213, end: 20130213
  2. ODYNE [Concomitant]
  3. ZOLADEX LA [Concomitant]
  4. AVOLVE [Concomitant]

REACTIONS (1)
  - Haemoglobin decreased [None]
